FAERS Safety Report 4499774-3 (Version None)
Quarter: 2004Q4

REPORT INFORMATION
  Report Type: 
  Country: None (occurrence: None)
  Receive Date: 20041112
  Receipt Date: 20041102
  Transmission Date: 20050328
  Serious: Yes (Life-Threatening, Other)
  Sender: FDA-Public Use
  Company Number: US-ABBOTT-04P-163-0279839-00

PATIENT
  Age: 19 Year
  Sex: Female

DRUGS (3)
  1. CISATRACURIUM (NIMBEX INJECTION) [Suspect]
     Indication: INDUCTION OF ANAESTHESIA
  2. FENTANYL [Concomitant]
     Indication: INDUCTION OF ANAESTHESIA
  3. PROPOFOL [Concomitant]
     Indication: DRUG USE FOR UNKNOWN INDICATION

REACTIONS (6)
  - CARDIAC ARREST [None]
  - HYPOXIA [None]
  - MYOCARDIAL ISCHAEMIA [None]
  - SINUS TACHYCARDIA [None]
  - SUPRAVENTRICULAR TACHYCARDIA [None]
  - VENTRICULAR TACHYCARDIA [None]
